FAERS Safety Report 9252092 (Version 1)
Quarter: 2013Q2

REPORT INFORMATION
  Report Type: Spontaneous
  Country: DK (occurrence: DK)
  Receive Date: 20130424
  Receipt Date: 20130424
  Transmission Date: 20140414
  Serious: Yes (Other)
  Sender: FDA-Public Use
  Company Number: PHHY2013DK037752

PATIENT
  Age: 40 Year
  Sex: Female
  Weight: 72 kg

DRUGS (1)
  1. THYCAPZOL [Suspect]
     Indication: HYPERTHYROIDISM
     Dosage: 5 MG, EVERY SECOND DAY
     Route: 048

REACTIONS (3)
  - Foetal death [Not Recovered/Not Resolved]
  - Maternal exposure timing unspecified [Recovered/Resolved]
  - Exposure during pregnancy [None]
